FAERS Safety Report 6999087-1 (Version None)
Quarter: 2010Q3

REPORT INFORMATION
  Report Type: 
  Country: None (occurrence: None)
  Receive Date: 20100920
  Receipt Date: 20100909
  Transmission Date: 20110219
  Serious: Yes (Hospitalization)
  Sender: FDA-Public Use
  Company Number: SZ-ASTRAZENECA-2010SE42681

PATIENT
  Age: 17 Year
  Sex: Female

DRUGS (12)
  1. SEROQUEL [Suspect]
     Indication: BIPOLAR DISORDER
     Route: 048
     Dates: start: 20081210
  2. SEROQUEL [Suspect]
     Dosage: PROGRESSIVELY INCREASING TO 2X200 AND 1X300 MG/DAY
     Route: 048
     Dates: start: 20090301
  3. SEROQUEL [Suspect]
     Route: 048
     Dates: start: 20090330, end: 20090330
  4. REMERON [Suspect]
     Indication: BIPOLAR DISORDER
     Route: 048
     Dates: start: 20081216
  5. REMERON [Suspect]
     Dosage: INCREASING TO 1X30 MG/DAY
     Route: 048
     Dates: start: 20090301
  6. NOZINAN [Concomitant]
     Indication: BIPOLAR DISORDER
     Route: 048
     Dates: start: 20081212
  7. TEMESTA [Concomitant]
     Indication: RESTLESSNESS
     Route: 048
     Dates: start: 20090210
  8. TEMESTA [Concomitant]
     Indication: AGITATION
     Route: 048
     Dates: start: 20090210
  9. ACETAMINOPHEN [Concomitant]
     Indication: PAIN
     Route: 048
     Dates: start: 20081219
  10. MEFENACID [Concomitant]
     Indication: PAIN
     Route: 048
     Dates: start: 20081219
  11. MOTILIUM [Concomitant]
     Indication: DYSPEPSIA
     Route: 048
     Dates: start: 20090224
  12. BEXIN [Concomitant]
     Indication: COUGH
     Route: 048
     Dates: start: 20090224

REACTIONS (8)
  - ALTERED STATE OF CONSCIOUSNESS [None]
  - ANAEMIA [None]
  - HYPOKALAEMIA [None]
  - HYPOTENSION [None]
  - OFF LABEL USE [None]
  - SUICIDE ATTEMPT [None]
  - TACHYCARDIA [None]
  - TACHYPNOEA [None]
